FAERS Safety Report 9485312 (Version 1)
Quarter: 2013Q3

REPORT INFORMATION
  Report Type: Spontaneous
  Country: FR (occurrence: FR)
  Receive Date: 20130828
  Receipt Date: 20130828
  Transmission Date: 20140515
  Serious: Yes (Disabling)
  Sender: FDA-Public Use
  Company Number: FR-B.I. PHARMACEUTICALS,INC./RIDGEFIELD-2013-FF-02143FF

PATIENT
  Age: 53 Year
  Sex: Female

DRUGS (3)
  1. SIFROL [Suspect]
     Indication: PARKINSON^S DISEASE
     Dosage: 0.52 MG
     Route: 048
     Dates: start: 201007, end: 201302
  2. AZILECT [Concomitant]
  3. CALCIUM [Concomitant]

REACTIONS (5)
  - Pain in extremity [Recovered/Resolved]
  - Muscle rigidity [Recovered/Resolved]
  - Erythema [Recovered/Resolved]
  - Local swelling [Recovered/Resolved]
  - Gait disturbance [Recovered/Resolved]
